FAERS Safety Report 5792955-8 (Version None)
Quarter: 2008Q2

REPORT INFORMATION
  Report Type: 
  Country: None (occurrence: None)
  Receive Date: 20080627
  Receipt Date: 20080618
  Transmission Date: 20081010
  Serious: Yes (Hospitalization)
  Sender: FDA-Public Use
  Company Number: DE-AMGEN-US286112

PATIENT
  Sex: Male
  Weight: 67 kg

DRUGS (4)
  1. ENBREL [Suspect]
     Indication: ANKYLOSING SPONDYLITIS
     Route: 058
     Dates: start: 20060630
  2. PREDNISOLONE [Concomitant]
     Indication: ANKYLOSING SPONDYLITIS
     Route: 048
     Dates: start: 20030331
  3. CALCIMAGON [Concomitant]
     Indication: OSTEOPOROSIS
     Route: 048
     Dates: start: 20060424
  4. LANTAREL [Concomitant]
     Indication: ANKYLOSING SPONDYLITIS
     Route: 058
     Dates: start: 20031105

REACTIONS (1)
  - BIPOLAR I DISORDER [None]
